FAERS Safety Report 10461418 (Version 1)
Quarter: 2014Q3

REPORT INFORMATION
  Report Type: Spontaneous
  Country: US (occurrence: None)
  Receive Date: 20140917
  Receipt Date: 20140917
  Transmission Date: 20150326
  Serious: No
  Sender: FDA-Public Use
  Company Number: None

PATIENT
  Age: 52 Year
  Sex: Male

DRUGS (14)
  1. AMPYRA [Suspect]
     Active Substance: DALFAMPRIDINE
     Indication: MULTIPLE SCLEROSIS
     Route: 048
     Dates: start: 20130709
  2. SENNOSIDES [Concomitant]
     Active Substance: SENNOSIDES
  3. BISACODYL. [Concomitant]
     Active Substance: BISACODYL
  4. RIFAMPIN. [Concomitant]
     Active Substance: RIFAMPIN
  5. MULTIVITAMIN-IRON-FOLIC ACID [Concomitant]
  6. NITROGLYCERIN. [Concomitant]
     Active Substance: NITROGLYCERIN
  7. METOPROLOL TARTRATE. [Concomitant]
     Active Substance: METOPROLOL TARTRATE
  8. DIPHENHYDRAMINE [Concomitant]
     Active Substance: DIPHENHYDRAMINE
  9. WARFARIN [Concomitant]
     Active Substance: WARFARIN
  10. ACETAMINOPHEN. [Concomitant]
     Active Substance: ACETAMINOPHEN
  11. HYDROCODONE ACETAMINOPHEN [Concomitant]
     Active Substance: ACETAMINOPHEN\HYDROCODONE BITARTRATE
  12. DOCUSATE [Concomitant]
     Active Substance: DOCUSATE
  13. ASPIRIN. [Concomitant]
     Active Substance: ASPIRIN
  14. OMEPRAZOLE. [Concomitant]
     Active Substance: OMEPRAZOLE

REACTIONS (1)
  - Haemangioma [None]

NARRATIVE: CASE EVENT DATE: 20140903
